FAERS Safety Report 7245827-6 (Version None)
Quarter: 2011Q1

REPORT INFORMATION
  Report Type: 
  Country: None (occurrence: None)
  Receive Date: 20110126
  Receipt Date: 20110119
  Transmission Date: 20110831
  Serious: Yes (Hospitalization)
  Sender: FDA-Public Use
  Company Number: US-MERCK-1101USA01940

PATIENT
  Age: 61 Year
  Sex: Female

DRUGS (1)
  1. FOSAMAX [Suspect]
     Route: 048

REACTIONS (9)
  - BONE DENSITY DECREASED [None]
  - GASTROINTESTINAL DISORDER [None]
  - CLOSTRIDIAL INFECTION [None]
  - ORAL INFECTION [None]
  - WEIGHT DECREASED [None]
  - PHARYNGITIS [None]
  - CROHN'S DISEASE [None]
  - APHAGIA [None]
  - OESOPHAGEAL INFECTION [None]
